FAERS Safety Report 12592887 (Version 1)
Quarter: 2016Q3

REPORT INFORMATION
  Report Type: Spontaneous
  Country: US (occurrence: US)
  Receive Date: 20160726
  Receipt Date: 20160726
  Transmission Date: 20161109
  Serious: Yes (Hospitalization)
  Sender: FDA-Public Use
  Company Number: PHHY2016US101317

PATIENT
  Age: 53 Year
  Sex: Female

DRUGS (1)
  1. NILOTINIB [Suspect]
     Active Substance: NILOTINIB
     Indication: CHRONIC MYELOID LEUKAEMIA
     Dosage: UNK
     Route: 065

REACTIONS (9)
  - Palpitations [Unknown]
  - Goitre [Recovering/Resolving]
  - Tremor [Unknown]
  - Atrial fibrillation [Recovered/Resolved]
  - Hyperthyroidism [Recovering/Resolving]
  - Dysphagia [Unknown]
  - Anxiety [Unknown]
  - Thyroid pain [Recovering/Resolving]
  - Tachycardia [Recovered/Resolved]
